FAERS Safety Report 9678057 (Version 1)
Quarter: 2013Q4

REPORT INFORMATION
  Report Type: Spontaneous
  Country: FI (occurrence: None)
  Receive Date: 20131106
  Receipt Date: 20131106
  Transmission Date: 20140711
  Serious: Yes (Hospitalization)
  Sender: FDA-Public Use
  Company Number: 1985581

PATIENT
  Age: 56 Year
  Sex: Female

DRUGS (6)
  1. DOCETAXEL [Suspect]
     Indication: PRODUCT USED FOR UNKNOWN INDICATION
     Route: 042
     Dates: start: 20130920, end: 20130920
  2. (TRASTUZUMAB) [Concomitant]
  3. (DEXAMETHASONE SODIUM PHOSPHATE) [Concomitant]
  4. (GRANISETRON HYDROCHLORIDE) [Concomitant]
  5. (PARACETAMOLUM) [Concomitant]
  6. (CETIRIZINE DIHCL) [Concomitant]

REACTIONS (1)
  - Megacolon [None]
